FAERS Safety Report 9440341 (Version 1)
Quarter: 2013Q3

REPORT INFORMATION
  Report Type: Spontaneous
  Country: US (occurrence: US)
  Receive Date: 20130805
  Receipt Date: 20130805
  Transmission Date: 20140515
  Serious: Yes (Hospitalization)
  Sender: FDA-Public Use
  Company Number: US-INCYTE CORPORATION-2013IN001720

PATIENT
  Age: 78 Year
  Sex: Male

DRUGS (11)
  1. JAKAFI [Suspect]
     Indication: MYELOFIBROSIS
     Dosage: 10 MG, BID
     Route: 048
  2. XANAX [Concomitant]
  3. LISINOPRIL [Concomitant]
  4. CLOTRIMAZOLE W/BETAMETHASONE [Concomitant]
  5. HYDROXYUREA [Concomitant]
  6. PAROXETINE HYDROCHLORIDE [Concomitant]
  7. METOPROLOL [Concomitant]
  8. LEVOTHYROXINE SODIUM [Concomitant]
  9. FUROSEMIDE [Concomitant]
  10. LOVAZA [Concomitant]
  11. ALLOPURINOL [Concomitant]

REACTIONS (3)
  - Abdominal discomfort [Unknown]
  - Retching [Unknown]
  - Platelet count decreased [Unknown]
